FAERS Safety Report 10189992 (Version 1)
Quarter: 2014Q2

REPORT INFORMATION
  Report Type: Spontaneous
  Country: IT (occurrence: IT)
  Receive Date: 20140522
  Receipt Date: 20140522
  Transmission Date: 20141212
  Serious: Yes (Other)
  Sender: FDA-Public Use
  Company Number: IT-ELI_LILLY_AND_COMPANY-IT201405003230

PATIENT
  Age: 6 Year
  Sex: Female
  Weight: 14 kg

DRUGS (3)
  1. HUMATROPE [Suspect]
     Indication: BODY HEIGHT BELOW NORMAL
     Dosage: 0.4 MG, QD
     Route: 058
     Dates: start: 20121015, end: 20140102
  2. HUMATROPE [Suspect]
     Indication: GROWTH RETARDATION
  3. HUMATROPE [Suspect]
     Indication: SILVER-RUSSELL SYNDROME

REACTIONS (2)
  - Nephroblastoma [Unknown]
  - Off label use [Unknown]
